FAERS Safety Report 10520039 (Version 1)
Quarter: 2014Q4

REPORT INFORMATION
  Report Type: Spontaneous
  Country: KR (occurrence: KR)
  Receive Date: 20141015
  Receipt Date: 20141015
  Transmission Date: 20150528
  Serious: Yes (Other)
  Sender: FDA-Public Use
  Company Number: KR-BAYER-2014-148269

PATIENT
  Sex: Male

DRUGS (1)
  1. NEXAVAR [Suspect]
     Active Substance: SORAFENIB
     Indication: PRODUCT USED FOR UNKNOWN INDICATION
     Dosage: TOTAL DAILY DOSE OF 800MG (2 T BID)
     Route: 048
     Dates: start: 20141003

REACTIONS (2)
  - Constipation [Recovered/Resolved]
  - Abdominal distension [None]

NARRATIVE: CASE EVENT DATE: 201410
